FAERS Safety Report 7750042-3 (Version None)
Quarter: 2011Q3

REPORT INFORMATION
  Report Type: 
  Country: None (occurrence: None)
  Receive Date: 20110914
  Receipt Date: 20110906
  Transmission Date: 20111222
  Serious: Yes (Hospitalization, Other)
  Sender: FDA-Public Use
  Company Number: US-AMGEN-USASP2011045445

PATIENT
  Age: 72 Year
  Sex: Female

DRUGS (1)
  1. ENBREL [Suspect]
     Indication: RHEUMATOID ARTHRITIS
     Dosage: 25 MG, 2 TIMES/WK
     Dates: start: 20000223, end: 20110826

REACTIONS (4)
  - INFREQUENT BOWEL MOVEMENTS [None]
  - ABDOMINAL PAIN [None]
  - CONSTIPATION [None]
  - STAPHYLOCOCCAL INFECTION [None]
